FAERS Safety Report 7038154-3 (Version None)
Quarter: 2010Q4

REPORT INFORMATION
  Report Type: 
  Country: None (occurrence: None)
  Receive Date: 20101011
  Receipt Date: 20100929
  Transmission Date: 20110411
  Serious: Yes (Other)
  Sender: FDA-Public Use
  Company Number: US-WATSON-2010-12891

PATIENT
  Age: 28 Year
  Sex: Female
  Weight: 63.492 kg

DRUGS (2)
  1. LEVONORGESTREL [Suspect]
     Indication: POST COITAL CONTRACEPTION
     Dosage: NEXT CHOICE TAKEN ABOUT ONE YEAR AGO.  PATIENT TOOK BOTH DOSES, FOLLOWED DIRECTIONS
     Route: 048
     Dates: start: 20090901, end: 20090901
  2. CLARITIN                           /00917501/ [Concomitant]
     Indication: PRODUCT USED FOR UNKNOWN INDICATION
     Dosage: UNK
     Route: 048

REACTIONS (5)
  - MENORRHAGIA [None]
  - NAUSEA [None]
  - OEDEMA PERIPHERAL [None]
  - PAIN IN EXTREMITY [None]
  - THROMBOSIS [None]
